FAERS Safety Report 16083470 (Version 1)
Quarter: 2019Q1

REPORT INFORMATION
  Report Type: Spontaneous
  Country: FR (occurrence: FR)
  Receive Date: 20190318
  Receipt Date: 20190318
  Transmission Date: 20190418
  Serious: Yes (Other)
  Sender: FDA-Public Use
  Company Number: FR-TEVA-2019-FR-1026334

PATIENT
  Age: 4 Day

DRUGS (6)
  1. DOXORUBICIN [Suspect]
     Active Substance: DOXORUBICIN
     Indication: HODGKIN^S DISEASE
     Dosage: PART OF THE ABVD CHEMOTHERAPY; DAY 1 AND 15 OF 28 DAY CYCLE
     Route: 064
  2. DEXAMETHASONE. [Suspect]
     Active Substance: DEXAMETHASONE
     Indication: ANTIEMETIC SUPPORTIVE CARE
     Route: 064
  3. ONDANSETRON [Suspect]
     Active Substance: ONDANSETRON
     Indication: ANTIEMETIC SUPPORTIVE CARE
     Route: 064
  4. BLEOMYCIN [Suspect]
     Active Substance: BLEOMYCIN SULFATE
     Indication: HODGKIN^S DISEASE
     Dosage: PART OF THE ABVD CHEMOTHERAPY; DAY 1 AND 15 OF 28 DAY CYCLE
     Route: 064
  5. VINBLASTINE [Suspect]
     Active Substance: VINBLASTINE
     Indication: HODGKIN^S DISEASE
     Dosage: PART OF THE ABVD CHEMOTHERAPY; DAY 1 AND 15 OF 28 DAY CYCLE
     Route: 064
  6. DACARBAZINE. [Suspect]
     Active Substance: DACARBAZINE
     Indication: HODGKIN^S DISEASE
     Dosage: PART OF THE ABVD CHEMOTHERAPY; DAY 1 AND 15 OF 28 DAY CYCLE
     Route: 064

REACTIONS (2)
  - Cardiac failure [Recovering/Resolving]
  - Foetal exposure during pregnancy [Unknown]
